FAERS Safety Report 13377225 (Version 2)
Quarter: 2018Q1

REPORT INFORMATION
  Report Type: Report from Study
  Country: FI (occurrence: FI)
  Receive Date: 20170328
  Receipt Date: 20180131
  Transmission Date: 20180508
  Serious: Yes (Other)
  Sender: FDA-Public Use
  Company Number: FI-MYLANLABS-2017M1018498

PATIENT
  Age: 51 Year
  Sex: Male

DRUGS (3)
  1. LEPONEX [Suspect]
     Active Substance: CLOZAPINE
     Indication: PRODUCT USED FOR UNKNOWN INDICATION
     Dosage: 125 MG, QD
  2. LEPONEX [Suspect]
     Active Substance: CLOZAPINE
     Dosage: 125 MG, QD
  3. LEPONEX [Suspect]
     Active Substance: CLOZAPINE
     Dosage: 100 MG, QD

REACTIONS (2)
  - Leukopenia [Unknown]
  - Schizophrenia [Unknown]
